FAERS Safety Report 21320884 (Version 1)
Quarter: 2022Q3

REPORT INFORMATION
  Report Type: Spontaneous
  Country: US (occurrence: US)
  Receive Date: 20220912
  Receipt Date: 20220912
  Transmission Date: 20221027
  Serious: No
  Sender: FDA-Public Use
  Company Number: US-GSKCCFUS-Case-01487598_AE-84861

PATIENT
  Sex: Female

DRUGS (1)
  1. LAMICTAL [Suspect]
     Active Substance: LAMOTRIGINE
     Indication: Product used for unknown indication
     Dosage: 150 MG

REACTIONS (5)
  - Rash [Not Recovered/Not Resolved]
  - Rash erythematous [Recovering/Resolving]
  - Skin warm [Unknown]
  - Urticaria [Not Recovered/Not Resolved]
  - Abnormal dreams [Not Recovered/Not Resolved]
